FAERS Safety Report 10232874 (Version 1)
Quarter: 2014Q2

REPORT INFORMATION
  Report Type: Spontaneous
  Country: DE (occurrence: DE)
  Receive Date: 20140612
  Receipt Date: 20140612
  Transmission Date: 20141212
  Serious: Yes (Other)
  Sender: FDA-Public Use
  Company Number: DE-BAXTER-2014BAX029660

PATIENT
  Age: 40 Year
  Sex: Female

DRUGS (11)
  1. ENDOXAN 1G [Suspect]
     Indication: B-CELL LYMPHOMA
     Dosage: 2 CYCLES IN 2ND TRIMESTER
     Route: 041
     Dates: start: 20131101
  2. ENDOXAN 1G [Suspect]
     Dosage: 2 CYCLES IN 2ND TRIMESTER
     Route: 041
     Dates: start: 201311, end: 20131116
  3. RITUXIMAB [Suspect]
     Indication: B-CELL LYMPHOMA
     Dosage: 2 CYCLES IN 2ND TRIMESTER
     Route: 041
     Dates: start: 20131031
  4. RITUXIMAB [Suspect]
     Dosage: 2 CYCLES IN 2ND TRIMESTER
     Route: 041
     Dates: start: 201311, end: 20131115
  5. DOXORUBICIN [Suspect]
     Indication: B-CELL LYMPHOMA
     Dosage: 2 CYCLES IN 2ND TRIMESTER
     Route: 041
     Dates: start: 20131101
  6. DOXORUBICIN [Suspect]
     Dosage: 2 CYCLES IN 2ND TRIMESTER
     Route: 041
     Dates: start: 201311, end: 20131116
  7. VINCRISTIN [Suspect]
     Indication: B-CELL LYMPHOMA
     Dosage: 2 CYCLES IN 2ND TRIMESTER
     Route: 041
     Dates: start: 20131101
  8. VINCRISTIN [Suspect]
     Dosage: 2 CYCLES IN 2ND TRIMESTER
     Route: 041
     Dates: start: 20131101, end: 20131116
  9. PEGFILGRASTIM [Concomitant]
     Indication: B-CELL LYMPHOMA
     Route: 058
  10. PREDNISOLONE [Concomitant]
     Indication: B-CELL LYMPHOMA
     Dosage: 2 CYCLES IN 2ND TRIMESTER
     Route: 048
     Dates: start: 20131101
  11. PREDNISOLONE [Concomitant]
     Dosage: 2 CYCLES IN 2ND TRIMESTER
     Route: 048
     Dates: start: 201311, end: 20131120

REACTIONS (1)
  - Exposure during pregnancy [Recovered/Resolved]
